FAERS Safety Report 19797293 (Version 2)
Quarter: 2021Q3

REPORT INFORMATION
  Report Type: Report from Study
  Country: JP (occurrence: JP)
  Receive Date: 20210901
  Receipt Date: 20210915
  Transmission Date: 20211014
  Serious: Yes (Hospitalization, Other)
  Sender: FDA-Public Use
  Company Number: JP-TAKEDA-2021TJP073403

PATIENT
  Age: 8 Year
  Sex: Male
  Weight: 20.5 kg

DRUGS (24)
  1. TATHION [Concomitant]
     Active Substance: GLUTATHIONE
     Indication: SHORT-BOWEL SYNDROME
     Dosage: 100 MILLIGRAM, BID
     Route: 048
  2. ELNEOPA NO.2 [Concomitant]
     Active Substance: AMINO ACIDS\DEXTROSE\ELECTROLYTES NOS\MINERALS\VITAMINS
     Indication: SHORT-BOWEL SYNDROME
     Dosage: 1000 MILLILITER, BID
     Route: 041
  3. ASELEND [Concomitant]
     Indication: SHORT-BOWEL SYNDROME
     Dosage: 0.5 DOSAGE FORM, BID
     Route: 041
  4. LEVOGLUTAMIDE [Concomitant]
     Active Substance: GLUTAMINE
     Indication: SHORT-BOWEL SYNDROME
     Dosage: 5 GRAM, BID
     Route: 048
  5. GASTER [Concomitant]
     Active Substance: FAMOTIDINE
     Indication: SHORT-BOWEL SYNDROME
     Dosage: 10 MILLIGRAM, BID
     Route: 048
  6. SODIUM CHLORIDE. [Concomitant]
     Active Substance: SODIUM CHLORIDE
     Indication: SHORT-BOWEL SYNDROME
     Dosage: 40 MILLILITER, BID
     Route: 041
  7. STRONGER NEO?MINOPHAGEN C [Concomitant]
     Active Substance: AMMONIUM GLYCYRRHIZATE\CYSTEINE HYDROCHLORIDE\GLYCINE
     Indication: SHORT-BOWEL SYNDROME
     Dosage: 20 MILLILITER, BID
     Route: 041
  8. HEPARIN NA LOCK [Concomitant]
     Active Substance: HEPARIN SODIUM
     Dosage: 5 MILLILITER, QD
     Route: 065
  9. LANSOPRAZOLE. [Concomitant]
     Active Substance: LANSOPRAZOLE
     Indication: SHORT-BOWEL SYNDROME
     Dosage: 7.5 MILLIGRAM, BID
     Route: 048
  10. URSO [Concomitant]
     Active Substance: URSODIOL
     Indication: SHORT-BOWEL SYNDROME
     Dosage: 50 MILLIGRAM, BID
     Route: 048
  11. MIYA?BM [Concomitant]
     Active Substance: CLOSTRIDIUM BUTYRICUM SPORES STRAIN M-55
     Indication: SHORT-BOWEL SYNDROME
     Dosage: 0.5 GRAM, BID
     Route: 048
  12. KEISHIBUKURYOGAN [Concomitant]
     Active Substance: HERBALS
     Indication: SHORT-BOWEL SYNDROME
     Dosage: 0.333 DOSAGE FORM, TID
     Route: 048
  13. GOREISAN [Concomitant]
     Active Substance: HERBALS
     Indication: SHORT-BOWEL SYNDROME
     Dosage: 0.333 DOSAGE FORM, TID
     Route: 048
  14. LOPEMIN [Concomitant]
     Indication: DIARRHOEA
     Dosage: 1 MILLIGRAM, TID
     Route: 048
  15. HEPARIN [Concomitant]
     Active Substance: HEPARIN SODIUM
     Indication: SHORT-BOWEL SYNDROME
     Dosage: 0.2 DOSAGE FORM, BID
     Route: 041
  16. VITAJECT [Concomitant]
     Active Substance: CYANOCOBALAMIN\PYRIDOXAMINE HYDROCHLORIDE\THIAMINE HYDROCHLORIDE
     Indication: SHORT-BOWEL SYNDROME
     Dosage: 1 DOSAGE FORM, QD
     Route: 041
  17. TEDUGLUTIDE [Suspect]
     Active Substance: TEDUGLUTIDE
     Indication: SHORT-BOWEL SYNDROME
     Dosage: 1 MILLIGRAM, QD
     Route: 050
     Dates: start: 20210805, end: 20210805
  18. NEUQUINON [Concomitant]
     Active Substance: DIETARY SUPPLEMENT\UBIDECARENONE
     Indication: SHORT-BOWEL SYNDROME
     Dosage: 2.5 MILLIGRAM, BID
     Route: 048
  19. MARZULENE ES [Concomitant]
     Indication: SHORT-BOWEL SYNDROME
     Dosage: 1 GRAM, BID
     Route: 048
  20. ENORAS [Concomitant]
     Indication: SHORT-BOWEL SYNDROME
     Dosage: 187.5 MILLILITER, QD
     Route: 065
  21. PLEAMIN P [Concomitant]
     Indication: SHORT-BOWEL SYNDROME
     Dosage: 200 MILLILITER, BID
     Route: 041
  22. LEVOCARNITINE. [Concomitant]
     Active Substance: LEVOCARNITINE
     Indication: SHORT-BOWEL SYNDROME
     Dosage: UNK, BID
     Route: 041
  23. INTRALIPOS [Concomitant]
     Active Substance: SOYBEAN OIL
     Dosage: 100 MILLILITER, QD
     Route: 065
  24. KANAMYCIN SULFATE [Concomitant]
     Active Substance: KANAMYCIN SULFATE
     Dosage: 2 MILLILITER, QD
     Route: 065

REACTIONS (1)
  - Lactic acidosis [Recovered/Resolved]

NARRATIVE: CASE EVENT DATE: 20210806
